FAERS Safety Report 6829106-4 (Version None)
Quarter: 2010Q3

REPORT INFORMATION
  Report Type: 
  Country: None (occurrence: None)
  Receive Date: 20100706
  Receipt Date: 20100618
  Transmission Date: 20110219
  Serious: Yes (Hospitalization)
  Sender: FDA-Public Use
  Company Number: 2009003567

PATIENT
  Age: 56 Year
  Sex: Male
  Weight: 59 kg

DRUGS (13)
  1. ERLOTINIB HYDROCHLORIDE [Suspect]
     Indication: NON-SMALL CELL LUNG CANCER
     Dosage: 150 MG, 1 IN 1 D, ORAL
     Route: 048
     Dates: start: 20091005, end: 20091026
  2. CP-751, 871 [Suspect]
     Indication: NON-SMALL CELL LUNG CANCER
     Dosage: 1180 MG, 1 IN 3 WK, INTRAVENOUS
     Route: 042
     Dates: start: 20091005, end: 20091026
  3. PACLITAXEL [Suspect]
     Indication: NON-SMALL CELL LUNG CANCER
     Dosage: 330 MG, 1 IN 3 WK, INTRAVENOUS
     Route: 042
     Dates: start: 20091005, end: 20091026
  4. CARBOPLATIN [Suspect]
     Indication: NON-SMALL CELL LUNG CANCER
     Dosage: 30 MG, 1 IN 3 WK, INTRAVENOUS
     Route: 042
     Dates: start: 20091005, end: 20091026
  5. IBUPROFEN [Concomitant]
  6. DIAZEPAM [Concomitant]
  7. SPIRIVA [Concomitant]
  8. DEFLAZACORT [Concomitant]
  9. MYCOSTATIN [Concomitant]
  10. LOPERAMIDE [Concomitant]
  11. MORPHINE SULFATE [Concomitant]
  12. HYDROCORTISONE [Concomitant]
  13. EPOGEN [Concomitant]

REACTIONS (8)
  - ALANINE AMINOTRANSFERASE INCREASED [None]
  - BLOOD AMYLASE INCREASED [None]
  - DRUG TOXICITY [None]
  - FATIGUE [None]
  - HAEMOGLOBIN DECREASED [None]
  - MUCOSAL INFLAMMATION [None]
  - PERFORMANCE STATUS DECREASED [None]
  - RENAL FAILURE ACUTE [None]
